FAERS Safety Report 4973955-4 (Version None)
Quarter: 2006Q2

REPORT INFORMATION
  Report Type: 
  Country: None (occurrence: None)
  Receive Date: 20060410
  Receipt Date: 20060322
  Transmission Date: 20061013
  Serious: Yes (Other)
  Sender: FDA-Public Use
  Company Number: US200603005883

PATIENT
  Age: 66 Year
  Sex: Female

DRUGS (2)
  1. HUMALOG PEN [Suspect]
     Indication: DIABETES MELLITUS INSULIN-DEPENDENT
     Dates: start: 20040101
  2. HUMALOG PEN (HUMALOG PEN) PEN DISPOSABLE [Concomitant]

REACTIONS (1)
  - LYMPHOMA [None]
